FAERS Safety Report 9088630 (Version 1)
Quarter: 2013Q1

REPORT INFORMATION
  Report Type: Spontaneous
  Country: AU (occurrence: AU)
  Receive Date: 20130131
  Receipt Date: 20130131
  Transmission Date: 20140127
  Serious: Yes (Other)
  Sender: FDA-Public Use
  Company Number: AU-PFIZER INC-2013038587

PATIENT
  Age: 67 Year
  Sex: Male

DRUGS (9)
  1. MS CONTIN [Suspect]
     Indication: PAIN
     Dosage: 40 MG, DAILY
     Route: 048
  2. CISPLATIN [Suspect]
     Dosage: 80 MG/M2, (133MG) DAY 1
  3. MAXOLON [Suspect]
     Indication: NAUSEA
     Dosage: 30 MG, DAILY
  4. MAXOLON [Suspect]
     Indication: VOMITING
  5. NEXIUM [Suspect]
     Dosage: 40 MG, DAILY
  6. TEMTABS [Suspect]
     Indication: SLEEP DISORDER
     Dosage: 10 MG, DAILY
  7. VINORELBINE [Suspect]
     Dosage: 15 MG/M2, (24MG) DAY 1 AND 8
  8. ASPIRIN [Concomitant]
     Dosage: UNK
  9. PRAVACHOL [Concomitant]
     Dosage: UNK

REACTIONS (1)
  - Renal failure acute [Not Recovered/Not Resolved]
